FAERS Safety Report 18420503 (Version 2)
Quarter: 2020Q4

REPORT INFORMATION
  Report Type: Spontaneous
  Country: PT (occurrence: PT)
  Receive Date: 20201023
  Receipt Date: 20201027
  Transmission Date: 20210114
  Serious: Yes (Hospitalization)
  Sender: FDA-Public Use
  Company Number: PT-MYLANLABS-2020M1088748

PATIENT
  Age: 47 Year
  Sex: Male

DRUGS (2)
  1. PARACETAMOL [Suspect]
     Active Substance: ACETAMINOPHEN
     Indication: INFLUENZA
  2. PARACETAMOL [Suspect]
     Active Substance: ACETAMINOPHEN
     Indication: INFLUENZA LIKE ILLNESS
     Dosage: UNK (3000-4500 MG/DAY)

REACTIONS (9)
  - Pyrexia [Unknown]
  - Multiple organ dysfunction syndrome [Unknown]
  - Jaundice [Unknown]
  - Condition aggravated [Unknown]
  - Liver injury [Unknown]
  - Asthenia [Unknown]
  - Pulmonary embolism [Unknown]
  - Oedema peripheral [Unknown]
  - Overdose [Unknown]
